FAERS Safety Report 10224132 (Version 2)
Quarter: 2016Q4

REPORT INFORMATION
  Report Type: Report from Study
  Country: JP (occurrence: JP)
  Receive Date: 20140609
  Receipt Date: 20161003
  Transmission Date: 20170206
  Serious: No
  Sender: FDA-Public Use
  Company Number: JP-SA-2014SA074432

PATIENT
  Age: 16 Year
  Sex: Female
  Weight: 64.2 kg

DRUGS (15)
  1. GASTER [Concomitant]
     Active Substance: FAMOTIDINE
     Indication: PROPHYLAXIS
     Dates: start: 20130729, end: 20130902
  2. ITRIZOLE [Concomitant]
     Active Substance: ITRACONAZOLE
     Indication: PROPHYLAXIS
     Dates: start: 20130816, end: 20131129
  3. MAGNESIUM OXIDE. [Concomitant]
     Active Substance: MAGNESIUM OXIDE
     Indication: PROPHYLAXIS
     Dates: start: 20130729
  4. NEORAL [Suspect]
     Active Substance: CYCLOSPORINE
     Indication: APLASTIC ANAEMIA
     Dates: start: 20130729, end: 201312
  5. NEORAL [Suspect]
     Active Substance: CYCLOSPORINE
     Indication: PRE-EXISTING DISEASE
     Dates: start: 20130729, end: 201312
  6. ACICLOVIR [Concomitant]
     Active Substance: ACYCLOVIR
     Indication: PROPHYLAXIS
     Dates: start: 20130729, end: 20130924
  7. CEFPIROME [Concomitant]
     Active Substance: CEFPIROME
     Indication: PROPHYLAXIS
     Dates: start: 20131129
  8. METHYLPREDNISOLONE. [Suspect]
     Active Substance: METHYLPREDNISOLONE
     Indication: PROPHYLAXIS
     Route: 065
     Dates: start: 20130729, end: 20130816
  9. EXJADE [Concomitant]
     Active Substance: DEFERASIROX
     Indication: APLASTIC ANAEMIA
     Dates: start: 20130729, end: 201312
  10. PREDONINE [Suspect]
     Active Substance: PREDNISOLONE\PREDNISOLONE ACETATE\PREDNISOLONE SODIUM SUCCINATE
     Indication: PROPHYLAXIS
     Route: 065
  11. DANAZOL. [Concomitant]
     Active Substance: DANAZOL
     Indication: APLASTIC ANAEMIA
     Dates: start: 20130729, end: 201312
  12. FUNGUARD [Concomitant]
     Active Substance: MICAFUNGIN SODIUM
     Indication: PROPHYLAXIS
     Dates: start: 20130729, end: 20130816
  13. PIPERACILLIN [Concomitant]
     Active Substance: PIPERACILLIN
     Indication: PROPHYLAXIS
     Dates: start: 20130729, end: 20130814
  14. THYMOGLOBULINE [Suspect]
     Active Substance: LAPINE T-LYMPHOCYTE IMMUNE GLOBULIN
     Indication: APLASTIC ANAEMIA
     Dosage: FIVE DOSES
     Route: 042
     Dates: start: 20130729, end: 20130802
  15. BAKTAR [Concomitant]
     Active Substance: SULFAMETHOXAZOLE\TRIMETHOPRIM
     Indication: PROPHYLAXIS
     Dates: start: 20130729

REACTIONS (3)
  - Fungal infection [Recovered/Resolved]
  - Hypertension [Recovered/Resolved]
  - Acne [Recovering/Resolving]

NARRATIVE: CASE EVENT DATE: 20130729
